FAERS Safety Report 18793141 (Version 20)
Quarter: 2022Q1

REPORT INFORMATION
  Report Type: Other
  Country: GB (occurrence: GB)
  Receive Date: 20210127
  Receipt Date: 20220318
  Transmission Date: 20220423
  Serious: Yes (Hospitalization, Other)
  Sender: FDA-Public Use
  Company Number: GB-ROCHE-2751663

PATIENT
  Age: 74 Year
  Sex: Female
  Weight: 79.95 kg

DRUGS (71)
  1. ATEZOLIZUMAB [Suspect]
     Active Substance: ATEZOLIZUMAB
     Indication: Small cell lung cancer extensive stage
     Dosage: DATE OF MOST RECENT DOSE OF ATEZOLIZUMAB PRIOR TO SERIOUS ADVERSE EVENT ONSET: 24/NOV/2020, 15/DEC/2
     Route: 041
     Dates: start: 20201103
  2. CARBOPLATIN [Suspect]
     Active Substance: CARBOPLATIN
     Indication: Small cell lung cancer extensive stage
     Route: 065
     Dates: start: 20201124
  3. ETOPOSIDE [Suspect]
     Active Substance: ETOPOSIDE
     Indication: Small cell lung cancer extensive stage
     Route: 065
     Dates: start: 20201124
  4. ETOPOSIDE [Suspect]
     Active Substance: ETOPOSIDE
     Route: 048
     Dates: start: 20201125
  5. DEXAMETHASONE [Suspect]
     Active Substance: DEXAMETHASONE
     Indication: Prophylaxis
     Route: 065
     Dates: start: 20201103, end: 20201103
  6. DEXAMETHASONE [Suspect]
     Active Substance: DEXAMETHASONE
     Route: 065
     Dates: start: 20201125, end: 20201127
  7. DEXAMETHASONE [Suspect]
     Active Substance: DEXAMETHASONE
     Route: 065
     Dates: start: 20201215, end: 20201215
  8. DEXAMETHASONE [Suspect]
     Active Substance: DEXAMETHASONE
     Route: 065
     Dates: start: 20210310, end: 20210310
  9. DEXAMETHASONE [Suspect]
     Active Substance: DEXAMETHASONE
     Route: 065
     Dates: start: 20201216, end: 20201218
  10. DEXAMETHASONE [Suspect]
     Active Substance: DEXAMETHASONE
     Route: 065
     Dates: start: 20210310, end: 20210310
  11. DEXAMETHASONE [Suspect]
     Active Substance: DEXAMETHASONE
     Route: 065
     Dates: start: 20210119, end: 20210120
  12. DEXAMETHASONE [Suspect]
     Active Substance: DEXAMETHASONE
     Route: 065
     Dates: start: 20201124, end: 20201124
  13. PREDNISOLONE [Suspect]
     Active Substance: PREDNISOLONE
     Indication: Product used for unknown indication
     Route: 065
     Dates: start: 20210108, end: 20210121
  14. PREDNISOLONE [Suspect]
     Active Substance: PREDNISOLONE
     Route: 065
     Dates: start: 20210121, end: 20210125
  15. SIMVASTATIN [Concomitant]
     Active Substance: SIMVASTATIN
     Indication: Hypercholesterolaemia
  16. HYDROCORTISONE SODIUM SUCCINATE [Concomitant]
     Active Substance: HYDROCORTISONE SODIUM SUCCINATE
     Indication: Premedication
     Dates: start: 20201124, end: 20201124
  17. ACETAMINOPHEN [Concomitant]
     Active Substance: ACETAMINOPHEN
     Indication: Pain
     Dosage: PRN
  18. DIHYDROCODEINE [Concomitant]
     Active Substance: DIHYDROCODEINE
     Indication: Pain
     Dosage: PRN
  19. DOMPERIDONE [Concomitant]
     Active Substance: DOMPERIDONE
     Indication: Prophylaxis
     Dosage: PRN
     Dates: start: 20201103
  20. LOPERAMIDE [Concomitant]
     Active Substance: LOPERAMIDE
     Indication: Diarrhoea
     Dosage: PRN
     Dates: start: 20201103
  21. LOPERAMIDE [Concomitant]
     Active Substance: LOPERAMIDE
     Indication: Diarrhoea
  22. ONDANSETRON [Concomitant]
     Active Substance: ONDANSETRON
     Indication: Prophylaxis
     Dates: start: 20201124, end: 20201124
  23. ONDANSETRON [Concomitant]
     Active Substance: ONDANSETRON
     Indication: Vomiting
     Dates: start: 20201215, end: 20201215
  24. ONDANSETRON [Concomitant]
     Active Substance: ONDANSETRON
     Dates: start: 20201222
  25. ONDANSETRON [Concomitant]
     Active Substance: ONDANSETRON
     Dates: start: 20201227, end: 20210108
  26. ONDANSETRON [Concomitant]
     Active Substance: ONDANSETRON
     Dates: start: 20210118, end: 20210122
  27. ONDANSETRON [Concomitant]
     Active Substance: ONDANSETRON
     Dosage: EVERY 0.33 DAY
  28. DENOSUMAB [Concomitant]
     Active Substance: DENOSUMAB
     Indication: Metastases to bone
     Dates: start: 20201124, end: 20201124
  29. CALCIUM CARBONATE [Concomitant]
     Active Substance: CALCIUM CARBONATE
     Dosage: EVERY 0.5 DAY
     Dates: start: 20201124
  30. CALCIUM CARBONATE [Concomitant]
     Active Substance: CALCIUM CARBONATE
     Dates: start: 20210103, end: 20210124
  31. ETOPOSIDE [Concomitant]
     Active Substance: ETOPOSIDE
     Dates: start: 20201125, end: 20201126
  32. ETOPOSIDE [Concomitant]
     Active Substance: ETOPOSIDE
     Dates: start: 20201216, end: 20201217
  33. FILGRASTIM [Concomitant]
     Active Substance: FILGRASTIM
     Indication: Prophylaxis
     Dates: start: 20201128, end: 20201205
  34. FILGRASTIM [Concomitant]
     Active Substance: FILGRASTIM
     Dates: start: 20201218, end: 20201226
  35. FILGRASTIM [Concomitant]
     Active Substance: FILGRASTIM
     Dates: start: 20201226, end: 20201229
  36. CHLORPHENIRAMINE MALEATE [Concomitant]
     Active Substance: CHLORPHENIRAMINE MALEATE
     Indication: Dyspnoea
     Dates: start: 20201124, end: 20201124
  37. CHLORPHENIRAMINE MALEATE [Concomitant]
     Active Substance: CHLORPHENIRAMINE MALEATE
     Indication: Flushing
     Dates: start: 20201215, end: 20201215
  38. CHLORPHENIRAMINE MALEATE [Concomitant]
     Active Substance: CHLORPHENIRAMINE MALEATE
     Indication: Nausea
  39. SODIUM CHLORIDE [Concomitant]
     Active Substance: SODIUM CHLORIDE
     Indication: Dyspnoea
     Dates: start: 20201124, end: 20201124
  40. SODIUM CHLORIDE [Concomitant]
     Active Substance: SODIUM CHLORIDE
     Indication: Flushing
  41. SODIUM CHLORIDE [Concomitant]
     Active Substance: SODIUM CHLORIDE
     Indication: Nausea
  42. OXYGEN [Concomitant]
     Active Substance: OXYGEN
     Indication: Dyspnoea
     Dates: start: 20201124, end: 20201124
  43. OXYGEN [Concomitant]
     Active Substance: OXYGEN
     Indication: Flushing
  44. OXYGEN [Concomitant]
     Active Substance: OXYGEN
     Indication: Nausea
  45. OMEPRAZOLE [Concomitant]
     Active Substance: OMEPRAZOLE
     Indication: Prophylaxis
     Dates: start: 20210103
  46. AMITRIPTYLINE [Concomitant]
     Active Substance: AMITRIPTYLINE
     Dates: start: 20210108, end: 20210121
  47. AMITRIPTYLINE [Concomitant]
     Active Substance: AMITRIPTYLINE
  48. COTRIMOXAZOLE [Concomitant]
     Active Substance: SULFAMETHOXAZOLE\TRIMETHOPRIM
     Dates: start: 20210125
  49. CREON [Concomitant]
     Active Substance: PANCRELIPASE AMYLASE\PANCRELIPASE LIPASE\PANCRELIPASE PROTEASE
     Dates: start: 20210120
  50. FOLIC ACID [Concomitant]
     Active Substance: FOLIC ACID
     Dates: start: 20210123
  51. SODIUM PHOSPHATE, MONOBASIC, ANHYDROUS [Concomitant]
     Active Substance: SODIUM PHOSPHATE, MONOBASIC, ANHYDROUS
     Indication: Hypophosphataemia
     Dates: start: 20210125
  52. SODIUM PHOSPHATE, MONOBASIC, ANHYDROUS [Concomitant]
     Active Substance: SODIUM PHOSPHATE, MONOBASIC, ANHYDROUS
     Dosage: EVERY 0.33 DAYS
     Dates: start: 20210108
  53. SODIUM PHOSPHATE, MONOBASIC, ANHYDROUS [Concomitant]
     Active Substance: SODIUM PHOSPHATE, MONOBASIC, ANHYDROUS
     Dates: start: 20210103, end: 20210108
  54. CALCIUM GLUCONATE [Concomitant]
     Active Substance: CALCIUM GLUCONATE
     Dates: start: 20201226, end: 20201226
  55. MEROPENEM [Concomitant]
     Active Substance: MEROPENEM
     Dosage: EVERY 0.33 DAY
     Dates: start: 20201226, end: 20210103
  56. MEROPENEM [Concomitant]
     Active Substance: MEROPENEM
     Dates: start: 20210103, end: 20210104
  57. CALCIUM CARBONATE [Concomitant]
     Active Substance: CALCIUM CARBONATE
     Dates: start: 20210104, end: 20210108
  58. METHYLPREDNISOLONE [Concomitant]
     Active Substance: METHYLPREDNISOLONE
     Dates: start: 20210118, end: 20210118
  59. METHYLPREDNISOLONE [Concomitant]
     Active Substance: METHYLPREDNISOLONE
     Dates: start: 20210120, end: 20210120
  60. METHYLPREDNISOLONE [Concomitant]
     Active Substance: METHYLPREDNISOLONE
     Dates: start: 20210122, end: 20210125
  61. DALTEPARIN [Concomitant]
     Active Substance: DALTEPARIN
     Indication: Prophylaxis
     Dates: start: 20210119, end: 20210125
  62. VANCOMYCIN [Concomitant]
     Active Substance: VANCOMYCIN
     Dates: start: 20210118, end: 20210120
  63. CHOLECALCIFEROL [Concomitant]
     Active Substance: CHOLECALCIFEROL
     Dates: start: 20210122, end: 20210125
  64. POTASSIUM CHLORIDE [Concomitant]
     Active Substance: POTASSIUM CHLORIDE
     Dosage: EVERY 0.33 DAY
     Dates: start: 20210104
  65. FIDAXOMICIN [Concomitant]
     Active Substance: FIDAXOMICIN
     Dates: start: 20210226, end: 20210308
  66. MAGNESIUM [Concomitant]
     Active Substance: MAGNESIUM
     Dates: start: 20210103
  67. AQUEOUS CREAM [Concomitant]
     Dates: start: 20210103
  68. OCTENISAN WASH LOTION [Concomitant]
     Dates: start: 20210103
  69. MAGNESIUM SULFATE [Concomitant]
     Active Substance: MAGNESIUM SULFATE
     Indication: Hypomagnesaemia
     Dates: start: 20210106, end: 20210106
  70. MAGNESIUM SULFATE [Concomitant]
     Active Substance: MAGNESIUM SULFATE
     Dates: start: 20201226, end: 20201226
  71. MAGNESIUM SULFATE [Concomitant]
     Active Substance: MAGNESIUM SULFATE
     Dates: start: 20210118, end: 20210118

REACTIONS (20)
  - Thrombocytopenia [Recovered/Resolved]
  - Neutropenic sepsis [Recovered/Resolved]
  - Enterocolitis [Recovered/Resolved]
  - Terminal ileitis [Not Recovered/Not Resolved]
  - COVID-19 pneumonia [Recovered/Resolved]
  - Vomiting [Recovered/Resolved]
  - Anaemia [Recovered/Resolved]
  - Diarrhoea [Recovered/Resolved]
  - Pancytopenia [Not Recovered/Not Resolved]
  - Hypoaesthesia [Not Recovered/Not Resolved]
  - Nausea [Recovered/Resolved]
  - Hypokalaemia [Recovered/Resolved]
  - Clostridium difficile infection [Recovered/Resolved]
  - Dizziness [Not Recovered/Not Resolved]
  - Pancreatitis chronic [Not Recovered/Not Resolved]
  - Fatigue [Not Recovered/Not Resolved]
  - Alopecia [Not Recovered/Not Resolved]
  - Dyspnoea [Recovered/Resolved]
  - Flushing [Recovered/Resolved]
  - Acute kidney injury [Recovered/Resolved]

NARRATIVE: CASE EVENT DATE: 20201120
